FAERS Safety Report 10252882 (Version 2)
Quarter: 2014Q4

REPORT INFORMATION
  Report Type: Spontaneous
  Country: US (occurrence: US)
  Receive Date: 20140623
  Receipt Date: 20141113
  Transmission Date: 20150528
  Serious: Yes (Life-Threatening, Hospitalization, Disabling)
  Sender: FDA-Public Use
  Company Number: US-BAYER-2014-088755

PATIENT
  Age: 35 Year
  Sex: Female
  Weight: 102.4 kg

DRUGS (1)
  1. MIRENA [Suspect]
     Active Substance: LEVONORGESTREL
     Indication: CONTRACEPTION
     Dosage: 20 MCG/24HR, CONT
     Route: 015
     Dates: start: 20071206, end: 20130416

REACTIONS (11)
  - Uterine perforation [None]
  - Emotional distress [None]
  - General physical health deterioration [None]
  - Post procedural infection [None]
  - Device misuse [None]
  - Injury [None]
  - Balance disorder [None]
  - Abdominal pain lower [None]
  - Device issue [None]
  - Genital haemorrhage [None]
  - Procedural pain [None]

NARRATIVE: CASE EVENT DATE: 201201
